FAERS Safety Report 21359060 (Version 1)
Quarter: 2022Q3

REPORT INFORMATION
  Report Type: Spontaneous
  Country: JP (occurrence: JP)
  Receive Date: 20220921
  Receipt Date: 20220921
  Transmission Date: 20221026
  Serious: Yes (Hospitalization)
  Sender: FDA-Public Use
  Company Number: JP-MYLANLABS-2022M1095351

PATIENT
  Age: 15 Year
  Sex: Male

DRUGS (7)
  1. CILOSTAZOL [Suspect]
     Active Substance: CILOSTAZOL
     Indication: Ventricular fibrillation
     Dosage: 200 MILLIGRAM, QD
     Route: 065
  2. CILOSTAZOL [Suspect]
     Active Substance: CILOSTAZOL
     Dosage: 100 MILLIGRAM, QD
     Route: 065
  3. QUINIDINE [Suspect]
     Active Substance: QUINIDINE
     Indication: Ventricular fibrillation
     Dosage: 200 MILLIGRAM, QD
     Route: 065
  4. QUINIDINE [Suspect]
     Active Substance: QUINIDINE
     Dosage: 400 MILLIGRAM, QD
     Route: 065
  5. QUINIDINE [Suspect]
     Active Substance: QUINIDINE
     Dosage: 600 MILLIGRAM, QD
     Route: 065
  6. ISOPROTERENOL [Concomitant]
     Active Substance: ISOPROTERENOL
     Indication: Ventricular fibrillation
     Route: 042
  7. MIDAZOLAM [Concomitant]
     Active Substance: MIDAZOLAM
     Indication: Sedative therapy
     Dosage: RECEIVED LOW DOSE
     Route: 065

REACTIONS (1)
  - Drug ineffective [Unknown]
